FAERS Safety Report 8049893-X (Version None)
Quarter: 2012Q1

REPORT INFORMATION
  Report Type: 
  Country: None (occurrence: None)
  Receive Date: 20120117
  Receipt Date: 20120111
  Transmission Date: 20120608
  Serious: No
  Sender: FDA-Public Use
  Company Number: US-PFIZER INC-2012008767

PATIENT
  Sex: Male

DRUGS (3)
  1. VIAGRA [Suspect]
     Dosage: UNK
  2. XANAX [Suspect]
     Indication: SLEEP DISORDER
     Dosage: UNK
  3. VIAGRA [Suspect]
     Dosage: 50 MG, AS NEEDED

REACTIONS (3)
  - DRUG EFFECT DECREASED [None]
  - SEDATION [None]
  - SOMNOLENCE [None]
